FAERS Safety Report 23630207 (Version 1)
Quarter: 2024Q1

REPORT INFORMATION
  Report Type: Report from Study
  Country: AR (occurrence: AR)
  Receive Date: 20240314
  Receipt Date: 20240314
  Transmission Date: 20240409
  Serious: Yes (Hospitalization, Other)
  Sender: FDA-Public Use
  Company Number: AR-JNJFOC-20240158157

PATIENT
  Age: 33 Year
  Sex: Male
  Weight: 55 kg

DRUGS (1)
  1. EPOPROSTENOL SODIUM [Suspect]
     Active Substance: EPOPROSTENOL SODIUM
     Indication: Pulmonary arterial hypertension
     Route: 042
     Dates: start: 20220915

REACTIONS (7)
  - Thrombosis [Unknown]
  - Limb injury [Unknown]
  - Dermatitis [Unknown]
  - Catheter placement [Unknown]
  - Blood disorder [Unknown]
  - Catheter site erythema [Unknown]
  - Catheter site oedema [Unknown]

NARRATIVE: CASE EVENT DATE: 20231212
